FAERS Safety Report 8856577 (Version 1)
Quarter: 2012Q4

REPORT INFORMATION
  Report Type: 
  Country: US (occurrence: US)
  Receive Date: 20121023
  Receipt Date: 20121023
  Transmission Date: 20130627
  Serious: No
  Sender: FDA-Public Use
  Company Number: US-AMGEN-USASP2012057239

PATIENT
  Sex: Female
  Weight: 68.03 kg

DRUGS (7)
  1. ENBREL [Suspect]
     Indication: PRODUCT USED FOR UNKNOWN INDICATION
     Dosage: 25 mg/ml, 2 times/wk
     Route: 058
  2. SYNTHROID [Concomitant]
     Dosage: 25 mug, UNK
  3. FOLGARD [Concomitant]
     Dosage: UNK
  4. VITAMIN C                          /00008001/ [Concomitant]
     Dosage: 500 mg, UNK
  5. CALCIUM [Concomitant]
     Dosage: UNK
  6. ZINC [Concomitant]
     Dosage: UNK
  7. MAGNESIUM [Concomitant]
     Dosage: UNK

REACTIONS (1)
  - Injection site pain [Unknown]
